FAERS Safety Report 17965034 (Version 1)
Quarter: 2020Q2

REPORT INFORMATION
  Report Type: Spontaneous
  Country: FR (occurrence: FR)
  Receive Date: 20200630
  Receipt Date: 20200630
  Transmission Date: 20200714
  Serious: Yes (Hospitalization, Other)
  Sender: FDA-Public Use
  Company Number: NVSC2020FR150482

PATIENT
  Age: 65 Year
  Sex: Male

DRUGS (8)
  1. TACROLIMUS. [Concomitant]
     Active Substance: TACROLIMUS
     Indication: HEART TRANSPLANT
     Dosage: 0.15 MG/KG (WITH RESIDUAL TARGET BETWEEN 8 AND 10 NG/ML)
     Route: 065
  2. VORICONAZOLE. [Suspect]
     Active Substance: VORICONAZOLE
     Indication: BRONCHOPULMONARY ASPERGILLOSIS
     Dosage: 6 MG/KG, BID 12 H, ON FIRST DAY
     Route: 042
  3. VORICONAZOLE. [Suspect]
     Active Substance: VORICONAZOLE
     Indication: ASPERGILLUS INFECTION
     Dosage: UNK, BID
     Route: 048
  4. VORICONAZOLE. [Suspect]
     Active Substance: VORICONAZOLE
     Route: 042
  5. MYCOPHENOLATE MOFETIL. [Concomitant]
     Active Substance: MYCOPHENOLATE MOFETIL
     Indication: HEART TRANSPLANT
     Dosage: 500 MG, BID
     Route: 065
  6. VORICONAZOLE. [Suspect]
     Active Substance: VORICONAZOLE
     Indication: OSTEOMYELITIS FUNGAL
     Dosage: 4 MG/KG, BID 12 H
     Route: 042
  7. PREDNISONE. [Concomitant]
     Active Substance: PREDNISONE
     Indication: HEART TRANSPLANT
     Dosage: 12.5 MG, QD
     Route: 065
  8. MYCOPHENOLATE MOFETIL. [Concomitant]
     Active Substance: MYCOPHENOLATE MOFETIL
     Dosage: 500 MG, Q12H
     Route: 065

REACTIONS (8)
  - Aspergillus infection [Recovered/Resolved]
  - Photosensitivity reaction [Recovered/Resolved]
  - Osteomyelitis fungal [Recovered/Resolved]
  - Skin toxicity [Recovered/Resolved]
  - Peripheral sensory neuropathy [Unknown]
  - Peripheral sensorimotor neuropathy [Recovered/Resolved]
  - Nervous system disorder [Recovered/Resolved]
  - Neurotoxicity [Unknown]
